FAERS Safety Report 23334249 (Version 1)
Quarter: 2023Q4

REPORT INFORMATION
  Report Type: Spontaneous
  Country: CN (occurrence: CN)
  Receive Date: 20231223
  Receipt Date: 20231223
  Transmission Date: 20240110
  Serious: Yes (Other)
  Sender: FDA-Public Use
  Company Number: None

PATIENT
  Age: 69 Year
  Sex: Female
  Weight: 60 kg

DRUGS (6)
  1. CYCLOPHOSPHAMIDE [Suspect]
     Active Substance: CYCLOPHOSPHAMIDE
     Indication: Diffuse large B-cell lymphoma
     Dosage: 0.6 G, ONE TIME IN ONE DAY, DILUTED WITH 30 ML OF 0.9 % SODIUM CHLORIDE (VERTICAL SOFT DOUBLE VALVE)
     Route: 040
     Dates: start: 20231118, end: 20231118
  2. SODIUM CHLORIDE [Suspect]
     Active Substance: SODIUM CHLORIDE
     Indication: Medication dilution
     Dosage: 30 ML, ONE TIME IN ONE DAY, USED TO DILUTE 0.6 G OF CYCLOPHOSPHAMIDE, VERTICAL SOFT DOUBLE VALVE
     Route: 040
     Dates: start: 20231118, end: 20231118
  3. SODIUM CHLORIDE [Suspect]
     Active Substance: SODIUM CHLORIDE
     Dosage: 30 ML, ONE TIME IN ONE DAY, USED TO DILUTE 60 MG OF EPIRUBICIN HYDROCHLORIDE
     Route: 040
     Dates: start: 20231118, end: 20231118
  4. SODIUM CHLORIDE [Suspect]
     Active Substance: SODIUM CHLORIDE
     Dosage: 30 ML, ONE TIME IN ONE DAY, USED TO DILUTE 2 MG OF VINDESIN SULFATE
     Route: 040
     Dates: start: 20231118, end: 20231118
  5. EPIRUBICIN HYDROCHLORIDE [Suspect]
     Active Substance: EPIRUBICIN HYDROCHLORIDE
     Indication: Diffuse large B-cell lymphoma
     Dosage: 60 MG, ONE TIME IN ONE DAY, DILUTED WITH 30 ML OF 0.9 % SODIUM CHLORIDE
     Route: 040
     Dates: start: 20231118, end: 20231118
  6. VINDESINE SULFATE [Suspect]
     Active Substance: VINDESINE SULFATE
     Indication: Diffuse large B-cell lymphoma
     Dosage: 2 MG, ONE TIME IN ONE DAY, DILUTED WITH 30 ML OF 0.9 % SODIUM CHLORIDE
     Route: 040
     Dates: start: 20231118, end: 20231118

REACTIONS (2)
  - Gastrointestinal haemorrhage [Unknown]
  - Haematochezia [Unknown]

NARRATIVE: CASE EVENT DATE: 20231120
